FAERS Safety Report 4618274-0 (Version None)
Quarter: 2005Q1

REPORT INFORMATION
  Report Type: 
  Country: None (occurrence: None)
  Receive Date: 20050323
  Receipt Date: 20050309
  Transmission Date: 20050727
  Serious: Yes (Hospitalization)
  Sender: FDA-Public Use
  Company Number: K200500340

PATIENT
  Age: 57 Year
  Sex: Female

DRUGS (9)
  1. SEPTRA [Suspect]
     Indication: INFECTION PROPHYLAXIS
     Dosage: 480 MG, QD, ORAL
     Route: 048
     Dates: start: 20041115, end: 20050210
  2. AZATHIOPRINE (AZATHIOPRINE) 75MG [Suspect]
     Indication: IMMUNOSUPPRESSION
     Dosage: 75 MG, QD, ORAL
     Route: 048
     Dates: start: 20041115, end: 20050212
  3. VALGANCICLOVIR (VALGANCICLOVIR) 900MG [Suspect]
     Indication: ANTIVIRAL PROPHYLAXIS
     Dosage: 900 MG, QD, ORAL
     Route: 048
     Dates: start: 20041125, end: 20050212
  4. TACROLIMUS (TACROLIMUS) [Concomitant]
  5. PREDNISONE [Concomitant]
  6. ACYCLOVIR [Concomitant]
  7. RANITIDINE HYDROCHLORIDE (TANITIDINE HYDROCHLORIDE) [Concomitant]
  8. ASPIRIN [Concomitant]
  9. PARACETAMIL (PARACETAMOL) [Concomitant]

REACTIONS (2)
  - ANAEMIA [None]
  - NEUTROPENIA [None]
